FAERS Safety Report 12009285 (Version 1)
Quarter: 2016Q1

REPORT INFORMATION
  Report Type: Spontaneous
  Country: GB (occurrence: GB)
  Receive Date: 20160205
  Receipt Date: 20160205
  Transmission Date: 20160526
  Serious: Yes (Other)
  Sender: FDA-Public Use
  Company Number: GB-TEVA-629000ACC

PATIENT
  Age: 67 Year
  Sex: Female
  Weight: 73.47 kg

DRUGS (1)
  1. QUININE SULPHATE [Suspect]
     Active Substance: QUININE SULFATE
     Indication: MUSCLE SPASMS
     Route: 048

REACTIONS (7)
  - Chromaturia [Recovered/Resolved]
  - Liver function test abnormal [Recovered/Resolved]
  - Blood cholesterol increased [Recovered/Resolved]
  - Decreased appetite [Recovered/Resolved]
  - Malaise [Recovered/Resolved]
  - Headache [Recovered/Resolved]
  - Dysstasia [Recovered/Resolved]

NARRATIVE: CASE EVENT DATE: 20140615
